FAERS Safety Report 17306220 (Version 9)
Quarter: 2021Q2

REPORT INFORMATION
  Report Type: Report from Study
  Country: None (occurrence: IL)
  Receive Date: 20200123
  Receipt Date: 20210426
  Transmission Date: 20210716
  Serious: Yes (Hospitalization, Other)
  Sender: FDA-Public Use
  Company Number: IL-ABBVIE-20K-082-3242177-00

PATIENT
  Age: 52 Year
  Sex: Female

DRUGS (5)
  1. HUMIRA [Suspect]
     Active Substance: ADALIMUMAB
     Route: 058
     Dates: start: 20200121, end: 20200121
  2. HUMIRA [Suspect]
     Active Substance: ADALIMUMAB
     Route: 058
     Dates: start: 2020, end: 2020
  3. HUMIRA [Suspect]
     Active Substance: ADALIMUMAB
     Indication: CROHN^S DISEASE
     Dosage: ABOUT A YEAR
     Route: 058
     Dates: start: 20161117
  4. HUMIRA [Suspect]
     Active Substance: ADALIMUMAB
     Route: 058
  5. HUMIRA [Suspect]
     Active Substance: ADALIMUMAB
     Route: 058
     Dates: start: 2020

REACTIONS (15)
  - Increased appetite [Not Recovered/Not Resolved]
  - Renal impairment [Unknown]
  - Abdominal pain [Not Recovered/Not Resolved]
  - General physical condition abnormal [Recovered/Resolved]
  - Bacterial test positive [Not Recovered/Not Resolved]
  - Blood parathyroid hormone decreased [Unknown]
  - Calculus bladder [Not Recovered/Not Resolved]
  - Crohn^s disease [Not Recovered/Not Resolved]
  - Inflammatory marker increased [Unknown]
  - Hypothermia [Recovered/Resolved]
  - Intestinal obstruction [Not Recovered/Not Resolved]
  - Calculus urinary [Unknown]
  - Blood potassium decreased [Unknown]
  - Escherichia infection [Recovered/Resolved]
  - Injection site pain [Recovered/Resolved]

NARRATIVE: CASE EVENT DATE: 2020
